FAERS Safety Report 7344078-4 (Version None)
Quarter: 2011Q1

REPORT INFORMATION
  Report Type: 
  Country: None (occurrence: None)
  Receive Date: 20110310
  Receipt Date: 20100602
  Transmission Date: 20110831
  Serious: No
  Sender: FDA-Public Use
  Company Number: A0862550A

PATIENT
  Age: 46 Year
  Sex: Male

DRUGS (1)
  1. NICORETTE (MINT) [Suspect]
     Dates: start: 20100601, end: 20100602

REACTIONS (2)
  - THROAT IRRITATION [None]
  - RETCHING [None]
